FAERS Safety Report 5665169-X (Version None)
Quarter: 2008Q1

REPORT INFORMATION
  Report Type: 
  Country: None (occurrence: None)
  Receive Date: 20080314
  Receipt Date: 20080303
  Transmission Date: 20080703
  Serious: Yes (Other)
  Sender: FDA-Public Use
  Company Number: US-PFIZER INC-2008007349

PATIENT
  Sex: Female

DRUGS (5)
  1. XANAX [Suspect]
     Indication: ANXIETY
  2. XANAX [Suspect]
     Indication: PSYCHOMOTOR HYPERACTIVITY
  3. XANAX [Suspect]
     Indication: MANIA
  4. CHANTIX [Suspect]
  5. PAXIL [Suspect]

REACTIONS (5)
  - ANXIETY [None]
  - DRUG DEPENDENCE [None]
  - DRUG INEFFECTIVE [None]
  - HYPERTENSION [None]
  - UNEVALUABLE EVENT [None]
